FAERS Safety Report 4525955-6 (Version None)
Quarter: 2004Q4

REPORT INFORMATION
  Report Type: 
  Country: None (occurrence: None)
  Receive Date: 20041213
  Receipt Date: 20041213
  Transmission Date: 20050328
  Serious: Yes (Disabling, Other)
  Sender: FDA-Public Use
  Company Number: None

PATIENT
  Age: 31 Year
  Sex: Female
  Weight: 72.5755 kg

DRUGS (3)
  1. EFFEXOR XR [Suspect]
     Indication: ANXIETY
     Dosage: 150MG   ONCE A DAY ORAL
     Route: 048
     Dates: start: 20040501, end: 20041210
  2. EFFEXOR XR [Suspect]
     Indication: BIPOLAR I DISORDER
     Dosage: 150MG   ONCE A DAY ORAL
     Route: 048
     Dates: start: 20040501, end: 20041210
  3. EFFEXOR XR [Suspect]
     Indication: DEPRESSION
     Dosage: 150MG   ONCE A DAY ORAL
     Route: 048
     Dates: start: 20040501, end: 20041210

REACTIONS (10)
  - AGITATION [None]
  - ANXIETY [None]
  - CHILLS [None]
  - CONDITION AGGRAVATED [None]
  - DRUG WITHDRAWAL SYNDROME [None]
  - HOSTILITY [None]
  - IRRITABILITY [None]
  - MUSCLE SPASMS [None]
  - RESTLESSNESS [None]
  - TINNITUS [None]
